FAERS Safety Report 9140975 (Version 1)
Quarter: 2013Q1

REPORT INFORMATION
  Report Type: Spontaneous
  Country: US (occurrence: US)
  Receive Date: 20130305
  Receipt Date: 20130305
  Transmission Date: 20140127
  Serious: No
  Sender: FDA-Public Use
  Company Number: US-009507513-1302USA012934

PATIENT
  Sex: Female
  Weight: 141.5 kg

DRUGS (1)
  1. IMPLANON [Suspect]
     Indication: CONTRACEPTION
     Dosage: 1 DF, UNK
     Route: 059
     Dates: end: 20130226

REACTIONS (4)
  - Device breakage [Unknown]
  - No adverse event [Unknown]
  - Incorrect drug administration duration [Unknown]
  - Product quality issue [Unknown]
